FAERS Safety Report 26157942 (Version 1)
Quarter: 2025Q4

REPORT INFORMATION
  Report Type: Spontaneous
  Country: US (occurrence: None)
  Receive Date: 20251215
  Receipt Date: 20251215
  Transmission Date: 20260118
  Serious: Yes (Death)
  Sender: FDA-CTU
  Company Number: None

PATIENT
  Age: 53 Year
  Sex: Male
  Weight: 117 kg

DRUGS (5)
  1. GLYCINE\TIRZEPATIDE [Suspect]
     Active Substance: GLYCINE\TIRZEPATIDE
     Indication: Weight decreased
     Dosage: OTHER FREQUENCY : TWICE A WEEK;
     Route: 058
     Dates: start: 20250601, end: 20251212
  2. ATORVASTATIN [Concomitant]
     Active Substance: ATORVASTATIN
  3. LISINOPRIL [Concomitant]
     Active Substance: LISINOPRIL
  4. FLUOXETINE [Concomitant]
     Active Substance: FLUOXETINE HYDROCHLORIDE
  5. Nexium GERD [Concomitant]

REACTIONS (7)
  - Pain [None]
  - Nausea [None]
  - Vomiting [None]
  - Diarrhoea [None]
  - Shock [None]
  - Multiple organ dysfunction syndrome [None]
  - Pancreatitis [None]

NARRATIVE: CASE EVENT DATE: 20251118
